FAERS Safety Report 18598127 (Version 3)
Quarter: 2022Q1

REPORT INFORMATION
  Report Type: Other
  Country: CN (occurrence: None)
  Receive Date: 20201210
  Receipt Date: 20220205
  Transmission Date: 20220424
  Serious: Yes (Death, Other)
  Sender: FDA-Public Use
  Company Number: CN-ROCHE-2724946

PATIENT

DRUGS (6)
  1. BEVACIZUMAB [Suspect]
     Active Substance: BEVACIZUMAB
     Indication: Colorectal adenocarcinoma
     Route: 042
  2. CAPECITABINE [Suspect]
     Active Substance: CAPECITABINE
     Indication: Colorectal adenocarcinoma
     Dosage: FROM DAYS 1-14 OF A 3 WEEKS CYCLE
     Route: 048
  3. OXALIPLATIN [Suspect]
     Active Substance: OXALIPLATIN
     Indication: Colorectal adenocarcinoma
     Route: 042
  4. FLUOROURACIL [Suspect]
     Active Substance: FLUOROURACIL
     Indication: Colorectal adenocarcinoma
     Dosage: ON DAY 1
     Route: 040
  5. FLUOROURACIL [Suspect]
     Active Substance: FLUOROURACIL
     Dosage: 46 H CONTINUOUS INTRAVENOUS INFUSION
     Route: 042
  6. LEUCOVORIN [Suspect]
     Active Substance: LEUCOVORIN
     Indication: Colorectal adenocarcinoma
     Route: 065

REACTIONS (54)
  - Gastrointestinal haemorrhage [Fatal]
  - Hypovolaemic shock [Fatal]
  - Respiratory failure [Fatal]
  - Bone marrow failure [Fatal]
  - Intestinal obstruction [Unknown]
  - Platelet count decreased [Unknown]
  - Neutrophil count decreased [Unknown]
  - Hypertension [Unknown]
  - White blood cell count decreased [Unknown]
  - Blood pressure increased [Unknown]
  - Blood bilirubin increased [Unknown]
  - Gamma-glutamyltransferase increased [Unknown]
  - Lymphocyte count decreased [Unknown]
  - Gastrointestinal disorder [Unknown]
  - Diarrhoea [Unknown]
  - Vomiting [Unknown]
  - Intestinal obstruction [Unknown]
  - Abdominal pain [Unknown]
  - Nausea [Unknown]
  - Angiopathy [Unknown]
  - Hypertension [Unknown]
  - Metabolic disorder [Unknown]
  - Hypokalaemia [Unknown]
  - Hypertriglyceridaemia [Unknown]
  - Hyponatraemia [Unknown]
  - Decreased appetite [Unknown]
  - Hypophosphataemia [Unknown]
  - Infection [Unknown]
  - Pneumonia [Unknown]
  - Upper respiratory tract infection [Unknown]
  - Skin disorder [Unknown]
  - Palmar-plantar erythrodysaesthesia syndrome [Unknown]
  - Anaemia [Unknown]
  - Nervous system disorder [Unknown]
  - Neurotoxicity [Unknown]
  - Unevaluable event [Unknown]
  - Fatigue [Unknown]
  - Hepatobiliary disease [Unknown]
  - Hepatic function abnormal [Unknown]
  - Musculoskeletal disorder [Unknown]
  - Back pain [Unknown]
  - Renal disorder [Unknown]
  - Proteinuria [Unknown]
  - Immune system disorder [Unknown]
  - Hypersensitivity [Unknown]
  - Cardiac disorder [Unknown]
  - Gastrointestinal perforation [Unknown]
  - Nephrotic syndrome [Unknown]
  - Embolism [Unknown]
  - Urinary tract disorder [Unknown]
  - Fistula [Unknown]
  - Haemorrhage [Unknown]
  - Impaired healing [Unknown]
  - Infusion related reaction [Unknown]
